FAERS Safety Report 8774352 (Version 1)
Quarter: 2012Q4

REPORT INFORMATION
  Report Type: 
  Country: US (occurrence: US)
  Receive Date: 20120907
  Receipt Date: 20120907
  Transmission Date: 20130627
  Serious: No
  Sender: FDA-Public Use
  Company Number: US-009507513-1209USA000725

PATIENT

DRUGS (4)
  1. SINGULAIR [Suspect]
     Indication: ASTHMA
     Dosage: 5 mg, qd
     Route: 048
     Dates: start: 2011
  2. ATENOLOL [Concomitant]
  3. PLAVIX [Concomitant]
  4. LIPITOR [Concomitant]

REACTIONS (1)
  - Product taste abnormal [Unknown]
